FAERS Safety Report 23698409 (Version 1)
Quarter: 2024Q2

REPORT INFORMATION
  Report Type: Spontaneous
  Country: US (occurrence: US)
  Receive Date: 20240402
  Receipt Date: 20240402
  Transmission Date: 20240716
  Serious: No
  Sender: FDA-Public Use
  Company Number: US-PFIZER INC-202400074311

PATIENT
  Age: 74 Year
  Sex: Female
  Weight: 72.57 kg

DRUGS (5)
  1. XELJANZ XR [Suspect]
     Active Substance: TOFACITINIB CITRATE
     Indication: Rheumatoid arthritis
     Dosage: UNK
     Dates: start: 20231205, end: 20240105
  2. METHOTREXATE SODIUM [Suspect]
     Active Substance: METHOTREXATE SODIUM
     Dosage: 5 DF, WEEKLY
  3. HUMIRA [Suspect]
     Active Substance: ADALIMUMAB
     Dosage: UNK
     Dates: start: 20240105
  4. ARMOUR THYROID [Concomitant]
     Active Substance: THYROID, PORCINE
     Indication: Thyroid disorder
     Dosage: 45 MG, DAILY
  5. REPATHA [Concomitant]
     Active Substance: EVOLOCUMAB
     Indication: Blood cholesterol increased

REACTIONS (1)
  - Drug ineffective [Unknown]
